FAERS Safety Report 4698223-X (Version None)
Quarter: 2005Q2

REPORT INFORMATION
  Report Type: 
  Country: None (occurrence: None)
  Receive Date: 20050623
  Receipt Date: 20050617
  Transmission Date: 20051028
  Serious: Yes (Hospitalization)
  Sender: FDA-Public Use
  Company Number: US-BRISTOL-MYERS SQUIBB COMPANY-13008529

PATIENT
  Age: 64 Year
  Sex: Male
  Weight: 65 kg

DRUGS (5)
  1. CETUXIMAB [Suspect]
     Indication: PANCREATIC CARCINOMA
     Dosage: TOTAL DOSE ADMIN. THIS COURSE 500 MG.
     Route: 042
     Dates: start: 20050609, end: 20050609
  2. GEMCITABINE [Suspect]
     Indication: PANCREATIC CARCINOMA
     Dosage: TOTAL DOSE ADMINISTERED THIS COURSE 1500 MG.
     Route: 042
     Dates: start: 20050609, end: 20050609
  3. ALTACE [Concomitant]
  4. ATENOLOL [Concomitant]
  5. PREVACID [Concomitant]

REACTIONS (1)
  - WHITE BLOOD CELL COUNT DECREASED [None]
